FAERS Safety Report 8444675-9 (Version None)
Quarter: 2012Q2

REPORT INFORMATION
  Report Type: 
  Country: None (occurrence: None)
  Receive Date: 20120618
  Receipt Date: 20120611
  Transmission Date: 20120825
  Serious: Yes (Hospitalization)
  Sender: FDA-Public Use
  Company Number: FR-PFIZER INC-2012139525

PATIENT
  Age: 59 Year
  Sex: Female

DRUGS (2)
  1. CLINDAMYCIN HCL [Suspect]
     Dosage: UNK
     Route: 048
     Dates: start: 20120406, end: 20120412
  2. CLINDAMYCIN HCL [Suspect]
     Indication: BURN INFECTION
     Dosage: UNK
     Route: 042
     Dates: start: 20120404, end: 20120405

REACTIONS (1)
  - TOXIC SKIN ERUPTION [None]
